FAERS Safety Report 9323577 (Version 1)
Quarter: 2013Q2

REPORT INFORMATION
  Report Type: Spontaneous
  Country: US (occurrence: US)
  Receive Date: 20130603
  Receipt Date: 20130603
  Transmission Date: 20140414
  Serious: Yes (Other)
  Sender: FDA-Public Use
  Company Number: US-CELGENEUS-163-POMAL-13053484

PATIENT
  Sex: Male

DRUGS (2)
  1. POMALYST [Suspect]
     Indication: PLASMA CELL MYELOMA
     Dosage: 4 MILLIGRAM
     Route: 048
     Dates: start: 201303
  2. POMALYST [Suspect]
     Dosage: 3 MILLIGRAM
     Route: 048
     Dates: start: 201304

REACTIONS (3)
  - Deafness unilateral [Unknown]
  - Ear haemorrhage [Unknown]
  - Respiratory tract infection [Unknown]
